FAERS Safety Report 9265366 (Version 1)
Quarter: 2013Q2

REPORT INFORMATION
  Report Type: Spontaneous
  Country: GB (occurrence: GB)
  Receive Date: 20130501
  Receipt Date: 20130501
  Transmission Date: 20140414
  Serious: Yes (Hospitalization, Other)
  Sender: FDA-Public Use
  Company Number: GB-ASTRAZENECA-2013SE27216

PATIENT
  Age: 39 Year
  Sex: Female
  Weight: 62 kg

DRUGS (3)
  1. LIDOCAINE [Suspect]
     Indication: LOCAL ANAESTHESIA
     Route: 059
     Dates: start: 20130313, end: 20130313
  2. NEXPLANON [Suspect]
     Route: 059
     Dates: start: 20130313, end: 20130328
  3. CERAZETTE [Concomitant]
     Route: 048

REACTIONS (5)
  - Pruritus [Not Recovered/Not Resolved]
  - Pain in extremity [Not Recovered/Not Resolved]
  - Pyrexia [Not Recovered/Not Resolved]
  - Local swelling [Not Recovered/Not Resolved]
  - Tenderness [Not Recovered/Not Resolved]
